FAERS Safety Report 6740423-9 (Version None)
Quarter: 2010Q2

REPORT INFORMATION
  Report Type: 
  Country: None (occurrence: None)
  Receive Date: 20100525
  Receipt Date: 20100517
  Transmission Date: 20101027
  Serious: Yes (Hospitalization)
  Sender: FDA-Public Use
  Company Number: PHHO2010DE07770

PATIENT
  Sex: Female
  Weight: 71 kg

DRUGS (5)
  1. AFINITOR [Suspect]
     Indication: BREAST CANCER
     Dosage: 5 MG, QD
     Route: 048
     Dates: start: 20100204, end: 20100506
  2. PACLITAXEL [Suspect]
     Dosage: 150 MG ONCE A WEEK 1X D 1, D 8, D 15
     Route: 042
     Dates: start: 20100211, end: 20100506
  3. BEVACIZUMAB [Concomitant]
  4. EPIRUBICIN [Concomitant]
  5. CYCLOPHOSPHAMIDE [Concomitant]

REACTIONS (2)
  - GENERAL PHYSICAL HEALTH DETERIORATION [None]
  - PYREXIA [None]
